FAERS Safety Report 8563780-X (Version None)
Quarter: 2012Q3

REPORT INFORMATION
  Report Type: 
  Country: None (occurrence: None)
  Receive Date: 20120803
  Receipt Date: 20120731
  Transmission Date: 20120928
  Serious: Yes (Other)
  Sender: FDA-Public Use
  Company Number: US-AMGEN-USASP2012047810

PATIENT
  Age: 60 Year
  Sex: Male

DRUGS (1)
  1. ENBREL [Suspect]
     Indication: ANKYLOSING SPONDYLITIS
     Dosage: 25 MG, EVERY 4-5 DAYS
     Route: 058
     Dates: start: 19990819

REACTIONS (4)
  - PARAPLEGIA [None]
  - BLEPHARITIS [None]
  - CYSTITIS [None]
  - NASOPHARYNGITIS [None]
